FAERS Safety Report 20549845 (Version 4)
Quarter: 2022Q2

REPORT INFORMATION
  Report Type: Spontaneous
  Country: AU (occurrence: AU)
  Receive Date: 20220304
  Receipt Date: 20220406
  Transmission Date: 20220721
  Serious: Yes (Other)
  Sender: FDA-Public Use
  Company Number: AU-NOVARTISPH-NVSC2022AU050381

PATIENT
  Sex: Male

DRUGS (1)
  1. IMATINIB [Suspect]
     Active Substance: IMATINIB
     Indication: Chronic myeloid leukaemia (in remission)
     Dosage: UNK
     Route: 065
     Dates: start: 20220204, end: 20220223

REACTIONS (7)
  - Tricuspid valve incompetence [Unknown]
  - Cardiac failure [Unknown]
  - Pulmonary hypertension [Unknown]
  - Pericardial effusion [Unknown]
  - Emphysema [Unknown]
  - Pleural effusion [Unknown]
  - Drug intolerance [Unknown]
